FAERS Safety Report 18592278 (Version 12)
Quarter: 2021Q3

REPORT INFORMATION
  Report Type: Spontaneous
  Country: CA (occurrence: CA)
  Receive Date: 20201209
  Receipt Date: 20210925
  Transmission Date: 20211014
  Serious: Yes (Hospitalization, Other)
  Sender: FDA-Public Use
  Company Number: CA-CELLTRION INC.-2020CA029900

PATIENT

DRUGS (12)
  1. INFLECTRA [Suspect]
     Active Substance: INFLIXIMAB-DYYB
     Dosage: 1000 MG, EVERY 8 WEEKS
     Route: 042
     Dates: start: 20210526
  2. INFLECTRA [Suspect]
     Active Substance: INFLIXIMAB-DYYB
     Dosage: 1000 MG, EVERY 8 WEEKS
     Route: 042
     Dates: start: 20210325
  3. INFLECTRA [Suspect]
     Active Substance: INFLIXIMAB-DYYB
     Indication: CROHN^S DISEASE
     Dosage: 500 MG, 0, 2, 6 WEEKS, EVERY 8 WEEKS (0 WEEK DOSE)
     Route: 042
     Dates: start: 20201020, end: 20201020
  4. INFLECTRA [Suspect]
     Active Substance: INFLIXIMAB-DYYB
     Dosage: 1000 MG, (500 MG TO TOP LAST INFUSION ON 27JAN2021 AND CONTINUE WITH 1000 MG Q 8 WEEKS  )
     Route: 042
     Dates: start: 20210223, end: 20210526
  5. PREDNISONE. [Concomitant]
     Active Substance: PREDNISONE
     Dosage: 15 MG
  6. INFLECTRA [Suspect]
     Active Substance: INFLIXIMAB-DYYB
     Dosage: 500 MG, 0, 2, 6 WEEKS, EVERY 8 WEEKS (6 WEEK DOSE)
     Route: 042
     Dates: start: 20201130, end: 20201130
  7. INFLECTRA [Suspect]
     Active Substance: INFLIXIMAB-DYYB
     Dosage: 1200 MG, EVERY 8 WEEK
     Route: 042
     Dates: start: 20210720
  8. INFLECTRA [Suspect]
     Active Substance: INFLIXIMAB-DYYB
     Dosage: 500 MG, 0, 2, 6 WEEKS, EVERY 8 WEEKS (0 WEEK DOSE)
     Route: 042
     Dates: start: 20201020
  9. INFLECTRA [Suspect]
     Active Substance: INFLIXIMAB-DYYB
     Dosage: 500 MG, 0, 2, 6 WEEKS, EVERY 8 WEEKS
     Route: 042
     Dates: start: 20210127, end: 20210127
  10. INFLECTRA [Suspect]
     Active Substance: INFLIXIMAB-DYYB
     Dosage: 1200 MG, EVERY 8 WEEK
     Route: 042
     Dates: start: 20210720
  11. INFLECTRA [Suspect]
     Active Substance: INFLIXIMAB-DYYB
     Dosage: 500 MG, 0, 2, 6 WEEKS, EVERY 8 WEEKS (2 WEEK DOSE)
     Route: 042
     Dates: start: 20201103, end: 20201103
  12. INFLECTRA [Suspect]
     Active Substance: INFLIXIMAB-DYYB
     Dosage: 1200 MG, EVERY 8 WEEK
     Route: 042
     Dates: start: 20210914

REACTIONS (19)
  - Off label use [Unknown]
  - Cataract [Unknown]
  - Feeling abnormal [Unknown]
  - Palpitations [Unknown]
  - Macular degeneration [Unknown]
  - Heart rate increased [Unknown]
  - Lethargy [Unknown]
  - Dyspnoea exertional [Unknown]
  - Steroid dependence [Not Recovered/Not Resolved]
  - Arthralgia [Unknown]
  - Faecal calprotectin increased [Not Recovered/Not Resolved]
  - Haemoglobin decreased [Not Recovered/Not Resolved]
  - Off label use [Unknown]
  - Inappropriate schedule of product administration [Unknown]
  - Drug level below therapeutic [Unknown]
  - Anxiety [Unknown]
  - Crohn^s disease [Unknown]
  - Intentional product use issue [Unknown]
  - Body temperature fluctuation [Unknown]

NARRATIVE: CASE EVENT DATE: 20201020
